FAERS Safety Report 13263619 (Version 1)
Quarter: 2017Q1

REPORT INFORMATION
  Report Type: Spontaneous
  Country: US (occurrence: US)
  Receive Date: 20170221
  Receipt Date: 20170221
  Transmission Date: 20170428
  Serious: Yes (Other)
  Sender: FDA-Public Use
  Company Number: None

PATIENT
  Age: 14 Year
  Sex: Male
  Weight: 65.25 kg

DRUGS (3)
  1. MIRALAX [Suspect]
     Active Substance: POLYETHYLENE GLYCOL 3350
     Indication: CONSTIPATION
     Dosage: 1 CAP FULL EVERY 12 HOURS ORAL?
     Route: 048
     Dates: start: 20160401, end: 20170219
  2. MINER OIL [Concomitant]
  3. SERTALINE [Concomitant]
     Active Substance: SERTRALINE HYDROCHLORIDE

REACTIONS (8)
  - Mood swings [None]
  - Agitation [None]
  - School refusal [None]
  - Mental impairment [None]
  - Tic [None]
  - Educational problem [None]
  - Abnormal behaviour [None]
  - Stress [None]

NARRATIVE: CASE EVENT DATE: 20160501
